FAERS Safety Report 7063470-9 (Version None)
Quarter: 2010Q4

REPORT INFORMATION
  Report Type: 
  Country: None (occurrence: None)
  Receive Date: 20101026
  Receipt Date: 20100316
  Transmission Date: 20110411
  Serious: No
  Sender: FDA-Public Use
  Company Number: US-ABBOTT-10P-163-0633822-00

PATIENT
  Sex: Female
  Weight: 90 kg

DRUGS (3)
  1. LEUPLIN FOR INJECTION 3.75 MG [Suspect]
     Indication: ENDOMETRIOSIS
     Route: 058
     Dates: start: 20100120
  2. IBUPROFEN [Concomitant]
     Indication: PRODUCT USED FOR UNKNOWN INDICATION
     Route: 048
  3. MICROGYNON-30 [Concomitant]
     Indication: PRODUCT USED FOR UNKNOWN INDICATION
     Route: 048

REACTIONS (3)
  - HEADACHE [None]
  - INJECTION SITE ERYTHEMA [None]
  - INJECTION SITE REACTION [None]
